FAERS Safety Report 8512570-2 (Version None)
Quarter: 2012Q3

REPORT INFORMATION
  Report Type: 
  Country: None (occurrence: None)
  Receive Date: 20120716
  Receipt Date: 20120705
  Transmission Date: 20120928
  Serious: Yes (Other)
  Sender: FDA-Public Use
  Company Number: US-VERTEX PHARMACEUTICALS INC.-AE-2012-009016

PATIENT
  Sex: Female
  Weight: 65.83 kg

DRUGS (6)
  1. PEPCID [Concomitant]
  2. INCIVEK [Suspect]
     Indication: HEPATITIS C
     Route: 048
     Dates: start: 20120526, end: 20120619
  3. PEGASYS [Concomitant]
     Indication: HEPATITIS C
     Route: 058
     Dates: start: 20120526, end: 20120619
  4. CELEXA [Concomitant]
     Indication: DEPRESSION
  5. RIBAVIRIN [Concomitant]
     Indication: HEPATITIS C
     Route: 048
     Dates: start: 20120526, end: 20120619
  6. SYTHROID [Concomitant]

REACTIONS (11)
  - LOSS OF CONSCIOUSNESS [None]
  - VOMITING [None]
  - RASH [None]
  - HYPOTENSION [None]
  - PRESYNCOPE [None]
  - DEHYDRATION [None]
  - ANAEMIA [None]
  - FACE OEDEMA [None]
  - HYPOVOLAEMIA [None]
  - NAUSEA [None]
  - HYPOPHAGIA [None]
